FAERS Safety Report 10277109 (Version 4)
Quarter: 2014Q4

REPORT INFORMATION
  Report Type: Report from Study
  Country: US (occurrence: US)
  Receive Date: 20140703
  Receipt Date: 20141225
  Transmission Date: 20150528
  Serious: Yes (Hospitalization)
  Sender: FDA-Public Use
  Company Number: US-BIOGENIDEC-2014BI061010

PATIENT
  Age: 48 Year
  Sex: Female

DRUGS (8)
  1. TECFIDERA [Suspect]
     Active Substance: DIMETHYL FUMARATE
     Indication: RELAPSING-REMITTING MULTIPLE SCLEROSIS
     Route: 048
     Dates: start: 20140322, end: 20140413
  2. CLONAZEPAM. [Concomitant]
     Active Substance: CLONAZEPAM
  3. ASPIRIN. [Concomitant]
     Active Substance: ASPIRIN
  4. TECFIDERA [Suspect]
     Active Substance: DIMETHYL FUMARATE
     Indication: RELAPSING-REMITTING MULTIPLE SCLEROSIS
     Route: 048
     Dates: start: 20140414
  5. GABAPENTIN. [Concomitant]
     Active Substance: GABAPENTIN
  6. CALCIUM [Concomitant]
     Active Substance: CALCIUM
  7. TECFIDERA [Suspect]
     Active Substance: DIMETHYL FUMARATE
     Indication: RELAPSING-REMITTING MULTIPLE SCLEROSIS
     Route: 048
     Dates: start: 20140315, end: 20140321
  8. PRISTIQ EXTENDED RELEASE [Concomitant]
     Active Substance: DESVENLAFAXINE SUCCINATE

REACTIONS (11)
  - Psychogenic seizure [Unknown]
  - Seizure [Recovered/Resolved]
  - Cough [Recovered/Resolved]
  - Abdominal discomfort [Unknown]
  - Oropharyngeal pain [Recovered/Resolved]
  - Night sweats [Recovered/Resolved]
  - Prescribed underdose [Recovered/Resolved]
  - Influenza like illness [Recovered/Resolved]
  - Pyrexia [Recovered/Resolved]
  - Flushing [Unknown]
  - White blood cell count decreased [Unknown]

NARRATIVE: CASE EVENT DATE: 2014
